FAERS Safety Report 7728169-1 (Version None)
Quarter: 2011Q3

REPORT INFORMATION
  Report Type: 
  Country: None (occurrence: None)
  Receive Date: 20110905
  Receipt Date: 20110825
  Transmission Date: 20111222
  Serious: Yes (Other)
  Sender: FDA-Public Use
  Company Number: US-AMGEN-USASP2011043872

PATIENT
  Age: 66 Year
  Sex: Female

DRUGS (1)
  1. ENBREL [Suspect]
     Indication: RHEUMATOID ARTHRITIS
     Dosage: 50 MG, QWK
     Dates: start: 20090605

REACTIONS (7)
  - LACERATION [None]
  - NEPHROLITHIASIS [None]
  - RHEUMATOID ARTHRITIS [None]
  - IMPAIRED HEALING [None]
  - LOCALISED INFECTION [None]
  - WOUND SECRETION [None]
  - HERPES ZOSTER [None]
